FAERS Safety Report 12724022 (Version 1)
Quarter: 2016Q3

REPORT INFORMATION
  Report Type: Spontaneous
  Country: US (occurrence: US)
  Receive Date: 20160906
  Receipt Date: 20160906
  Transmission Date: 20161109
  Serious: No
  Sender: FDA-Public Use
  Company Number: None

PATIENT
  Age: 75 Year
  Sex: Male

DRUGS (1)
  1. SUTENT [Suspect]
     Active Substance: SUNITINIB MALATE
     Dosage: 1 QD X 4 WEEK PO
     Route: 048

REACTIONS (2)
  - Fatigue [None]
  - Stomatitis [None]

NARRATIVE: CASE EVENT DATE: 20160906
